FAERS Safety Report 7091184-8 (Version None)
Quarter: 2010Q4

REPORT INFORMATION
  Report Type: 
  Country: None (occurrence: None)
  Receive Date: 20101109
  Receipt Date: 20101102
  Transmission Date: 20110411
  Serious: Yes (Hospitalization)
  Sender: FDA-Public Use
  Company Number: FR-SANOFI-AVENTIS-2010SA066512

PATIENT
  Age: 83 Year
  Sex: Male

DRUGS (8)
  1. LASIX [Suspect]
     Route: 048
     Dates: end: 20090205
  2. KARDEGIC [Suspect]
     Indication: THROMBOSIS PROPHYLAXIS
     Route: 048
     Dates: end: 20090205
  3. AMOXICILLIN AND CLAVULANATE POTASSIUM [Suspect]
     Indication: BRONCHITIS
     Route: 048
     Dates: start: 20090101, end: 20090101
  4. ROSUVASTATIN CALCIUM [Suspect]
     Route: 048
     Dates: end: 20090205
  5. PERINDOPRIL [Suspect]
     Route: 048
     Dates: end: 20090205
  6. TENORMIN [Suspect]
     Route: 048
     Dates: end: 20090205
  7. AMLODIPINE [Concomitant]
     Route: 048
  8. NITRODERM [Concomitant]
     Dosage: DOSE:1 UNIT(S)
     Route: 003

REACTIONS (2)
  - CHOLESTASIS [None]
  - CYTOLYTIC HEPATITIS [None]
